FAERS Safety Report 10612981 (Version 1)
Quarter: 2014Q4

REPORT INFORMATION
  Report Type: Report from Study
  Country: US (occurrence: US)
  Receive Date: 20141127
  Receipt Date: 20141127
  Transmission Date: 20150529
  Serious: Yes (Other)
  Sender: FDA-Public Use
  Company Number: PHEH2014US023016

PATIENT
  Sex: Female

DRUGS (3)
  1. VITA B [Concomitant]
  2. GILENYA [Suspect]
     Active Substance: FINGOLIMOD HYDROCHLORIDE
     Indication: MULTIPLE SCLEROSIS
     Dosage: 0.5 MG, QD
     Route: 048
     Dates: start: 20141017
  3. MULTI VITAMIN [Concomitant]
     Active Substance: VITAMINS

REACTIONS (5)
  - Hypersensitivity [Unknown]
  - Lip dry [Unknown]
  - Lip swelling [Unknown]
  - Rash generalised [Unknown]
  - Rash [Unknown]
